FAERS Safety Report 9138618 (Version 1)
Quarter: 2013Q1

REPORT INFORMATION
  Report Type: Spontaneous
  Country: US (occurrence: None)
  Receive Date: 20130227
  Receipt Date: 20130227
  Transmission Date: 20140127
  Serious: Yes (Death)
  Sender: FDA-Public Use
  Company Number: AUR-APL-2013-00602

PATIENT
  Age: 31 Year
  Sex: Female

DRUGS (7)
  1. CYCLOBENZAPRINE [Suspect]
     Indication: PRODUCT USED FOR UNKNOWN INDICATION
     Route: 048
  2. QUETIAPINE (QUETIAPINE) (QUETIAPINE) [Suspect]
  3. ACETAMINOPHEN\BUTALBITAL\CAFFEINE\CODEINE PHOSPHATE [Suspect]
  4. ACETAMINOPHEN/ HYDROCODONE [Suspect]
  5. TEMAZEPAM (TEMAZEPAM) [Suspect]
  6. ACETAMINOPHEN/ OXYCODONE [Suspect]
  7. LORATIDINE [Suspect]

REACTIONS (2)
  - Completed suicide [None]
  - Toxicity to various agents [None]
